FAERS Safety Report 19822855 (Version 2)
Quarter: 2021Q4

REPORT INFORMATION
  Report Type: Spontaneous
  Country: JP (occurrence: None)
  Receive Date: 20210913
  Receipt Date: 20211112
  Transmission Date: 20220303
  Serious: Yes (Other)
  Sender: FDA-Public Use
  Company Number: JP-ROCHE-2908982

PATIENT
  Age: 60 Year
  Sex: Male

DRUGS (22)
  1. RITUXAN [Suspect]
     Active Substance: RITUXIMAB
     Indication: Double hit lymphoma
     Route: 041
     Dates: start: 202008
  2. RITUXAN [Suspect]
     Active Substance: RITUXIMAB
     Route: 041
     Dates: start: 202009
  3. RITUXAN [Suspect]
     Active Substance: RITUXIMAB
     Route: 041
     Dates: start: 202010
  4. RITUXAN [Suspect]
     Active Substance: RITUXIMAB
     Route: 041
     Dates: start: 202012
  5. KYMRIAH [Suspect]
     Active Substance: TISAGENLECLEUCEL
     Indication: Double hit lymphoma
     Route: 042
     Dates: start: 20210319, end: 20210319
  6. CYCLOPHOSPHAMIDE [Concomitant]
     Active Substance: CYCLOPHOSPHAMIDE
     Indication: Double hit lymphoma
  7. VINCRISTINE SULFATE [Concomitant]
     Active Substance: VINCRISTINE SULFATE
     Indication: Double hit lymphoma
     Route: 041
     Dates: start: 202008
  8. VINCRISTINE SULFATE [Concomitant]
     Active Substance: VINCRISTINE SULFATE
     Route: 041
     Dates: start: 202009
  9. PREDNISOLONE [Concomitant]
     Active Substance: PREDNISOLONE
     Indication: Double hit lymphoma
     Dosage: SUBSEQUENT DOSES RECEIVED ON SEP/2020,OCT/2020
     Dates: start: 202008
  10. ETOPOSIDE [Concomitant]
     Active Substance: ETOPOSIDE
     Indication: Double hit lymphoma
     Dosage: SUBSEQUENT DOSES RECEIVED ON OCT/2020, DEC/2020.
     Dates: start: 202009
  11. DOXORUBICIN HYDROCHLORIDE [Concomitant]
     Active Substance: DOXORUBICIN HYDROCHLORIDE
     Indication: Double hit lymphoma
     Route: 042
     Dates: start: 202009
  12. METHOTREXATE [Concomitant]
     Active Substance: METHOTREXATE
     Indication: Double hit lymphoma
     Route: 065
     Dates: start: 202009
  13. CARBOPLATIN [Concomitant]
     Active Substance: CARBOPLATIN
     Indication: Double hit lymphoma
     Route: 042
     Dates: start: 202010
  14. METHYLPREDNISOLONE [Concomitant]
     Active Substance: METHYLPREDNISOLONE
     Indication: Double hit lymphoma
     Route: 065
     Dates: start: 202010
  15. CYTARABINE [Concomitant]
     Active Substance: CYTARABINE
     Indication: Double hit lymphoma
     Route: 042
     Dates: start: 202010
  16. CISPLATIN [Concomitant]
     Active Substance: CISPLATIN
     Indication: Double hit lymphoma
     Route: 042
     Dates: start: 202010
  17. MESNA [Concomitant]
     Active Substance: MESNA
     Indication: Double hit lymphoma
     Route: 042
     Dates: start: 202012
  18. IFOSFAMIDE [Concomitant]
     Active Substance: IFOSFAMIDE
     Indication: Double hit lymphoma
     Route: 042
     Dates: start: 202012
  19. MITOXANTRONE HYDROCHLORIDE [Concomitant]
     Active Substance: MITOXANTRONE HYDROCHLORIDE
     Indication: Double hit lymphoma
     Route: 042
     Dates: start: 202012
  20. GEMCITABINE [Concomitant]
     Active Substance: GEMCITABINE
  21. DEXAMETHASONE [Concomitant]
     Active Substance: DEXAMETHASONE
     Indication: Double hit lymphoma
     Route: 065
  22. FLUDARABINE PHOSPHATE [Concomitant]
     Active Substance: FLUDARABINE PHOSPHATE
     Indication: Double hit lymphoma

REACTIONS (2)
  - Immune effector cell-associated neurotoxicity syndrome [Recovered/Resolved]
  - White blood cell count decreased [Recovered/Resolved]
